FAERS Safety Report 5396862-4 (Version None)
Quarter: 2007Q3

REPORT INFORMATION
  Report Type: 
  Country: None (occurrence: None)
  Receive Date: 20070725
  Receipt Date: 20070531
  Transmission Date: 20080115
  Serious: Yes (Hospitalization, Other)
  Sender: FDA-Public Use
  Company Number: US-PURDUE-USA_2007_0027714

PATIENT
  Sex: Female
  Weight: 181 kg

DRUGS (3)
  1. OXYCONTIN [Suspect]
     Indication: PAIN
     Dosage: UNK, SEE TEXT
  2. PERCOCET [Concomitant]
  3. HEROIN [Suspect]
     Indication: DRUG ABUSER
     Dosage: UNK, UNK

REACTIONS (13)
  - AMNESIA [None]
  - ANHEDONIA [None]
  - DEPRESSION [None]
  - DRUG INEFFECTIVE [None]
  - DYSPNOEA [None]
  - LIBIDO DECREASED [None]
  - MOVEMENT DISORDER [None]
  - NERVE INJURY [None]
  - PAIN [None]
  - POLYSUBSTANCE DEPENDENCE [None]
  - RENAL IMPAIRMENT [None]
  - SOCIAL AVOIDANT BEHAVIOUR [None]
  - SUBSTANCE ABUSE [None]
